FAERS Safety Report 6648448-9 (Version None)
Quarter: 2010Q1

REPORT INFORMATION
  Report Type: 
  Country: None (occurrence: None)
  Receive Date: 20100324
  Receipt Date: 20100324
  Transmission Date: 20100710
  Serious: No
  Sender: FDA-Public Use
  Company Number: GB-ROCHE-643700

PATIENT
  Sex: Female
  Weight: 66 kg

DRUGS (1)
  1. TAMIFLU [Suspect]
     Indication: H1N1 INFLUENZA
     Route: 048
     Dates: start: 20090711, end: 20090713

REACTIONS (2)
  - NO ADVERSE EVENT [None]
  - PREGNANCY [None]
